FAERS Safety Report 10153079 (Version 2)
Quarter: 2014Q2

REPORT INFORMATION
  Report Type: Spontaneous
  Country: JP (occurrence: JP)
  Receive Date: 20140505
  Receipt Date: 20140606
  Transmission Date: 20141212
  Serious: Yes (Death, Other)
  Sender: FDA-Public Use
  Company Number: JP-BAYER-2014-062150

PATIENT
  Age: 78 Year
  Sex: Male
  Weight: 47 kg

DRUGS (9)
  1. NEXAVAR [Suspect]
     Indication: HEPATOCELLULAR CARCINOMA
     Dosage: DAILY DOSE 400 MG
     Route: 048
     Dates: start: 20140401, end: 20140411
  2. NEXIUM [Concomitant]
     Dosage: DAILY DOSE 20 MG
     Route: 048
     Dates: start: 20140219, end: 20140416
  3. FUROSEMIDE [Concomitant]
     Dosage: DAILY DOSE 20 MG
     Route: 048
     Dates: start: 20140219, end: 20140416
  4. LIVACT [Concomitant]
     Dosage: DAILY DOSE 12.45 G
     Route: 048
     Dates: start: 20140219, end: 20140416
  5. SELBEX [Concomitant]
     Dosage: DAILY DOSE 150 MG
     Route: 048
     Dates: start: 20140219, end: 20140416
  6. FEBUXOSTAT [Concomitant]
     Dosage: DAILY DOSE 40 MG
     Route: 048
     Dates: start: 20140219, end: 20140416
  7. EBASTINE [Concomitant]
     Dosage: DAILY DOSE 10 MG
     Route: 048
     Dates: start: 20140219, end: 20140416
  8. MIYA BM [Concomitant]
     Dosage: UNK
     Route: 048
     Dates: start: 20140219, end: 20140416
  9. JUZENTAIHOTO [Concomitant]

REACTIONS (8)
  - Lower gastrointestinal haemorrhage [Fatal]
  - Melaena [Fatal]
  - Malaise [None]
  - Arrhythmia [Fatal]
  - Convulsion [Fatal]
  - Blood pressure decreased [Fatal]
  - Loss of consciousness [Fatal]
  - Diarrhoea [Unknown]
